FAERS Safety Report 17927387 (Version 1)
Quarter: 2020Q2

REPORT INFORMATION
  Report Type: Report from Study
  Country: CO (occurrence: CO)
  Receive Date: 20200622
  Receipt Date: 20200622
  Transmission Date: 20200714
  Serious: Yes (Other)
  Sender: FDA-Public Use
  Company Number: NVSC2020CO173687

PATIENT
  Sex: Female
  Weight: 56 kg

DRUGS (3)
  1. LOSARTAN. [Suspect]
     Active Substance: LOSARTAN
     Indication: HYPERTENSION
     Dosage: 50 MG, Q12H
     Route: 065
  2. PARACODIN [Concomitant]
     Indication: HYPERTENSION
     Dosage: UNK, QD
     Route: 048
     Dates: end: 20200615
  3. CARVEDILOL. [Suspect]
     Active Substance: CARVEDILOL
     Indication: HYPERTENSION
     Dosage: 6.25 MG, QD
     Route: 065

REACTIONS (2)
  - Chronic myeloid leukaemia [Unknown]
  - Off label use [Unknown]
